FAERS Safety Report 10364239 (Version 3)
Quarter: 2014Q4

REPORT INFORMATION
  Report Type: Report from Study
  Country: US (occurrence: US)
  Receive Date: 20140806
  Receipt Date: 20141028
  Transmission Date: 20150528
  Serious: Yes (Hospitalization)
  Sender: FDA-Public Use
  Company Number: US-BIOGENIDEC-2014BI074474

PATIENT
  Age: 49 Year
  Sex: Female

DRUGS (1)
  1. TYSABRI [Suspect]
     Active Substance: NATALIZUMAB
     Indication: MULTIPLE SCLEROSIS
     Route: 042
     Dates: start: 20120220

REACTIONS (6)
  - Procedural complication [Recovered/Resolved]
  - Intestinal obstruction [Unknown]
  - Cholecystectomy [Recovered/Resolved]
  - Drug dose omission [Unknown]
  - Faecal incontinence [Unknown]
  - Liver disorder [Unknown]

NARRATIVE: CASE EVENT DATE: 2014
